FAERS Safety Report 7495649-6 (Version None)
Quarter: 2011Q2

REPORT INFORMATION
  Report Type: 
  Country: None (occurrence: None)
  Receive Date: 20110523
  Receipt Date: 20110517
  Transmission Date: 20111010
  Serious: Yes (Other)
  Sender: FDA-Public Use
  Company Number: US-PFIZER INC-2011107080

PATIENT
  Sex: Female

DRUGS (3)
  1. EFFEXOR [Concomitant]
  2. CHANTIX [Suspect]
     Dosage: UNK
     Dates: start: 20110428
  3. DIAZEPAM [Concomitant]

REACTIONS (5)
  - SPEECH DISORDER [None]
  - SOMNOLENCE [None]
  - ASTHENIA [None]
  - ABNORMAL DREAMS [None]
  - DEPRESSION [None]
